FAERS Safety Report 6853534-4 (Version None)
Quarter: 2010Q3

REPORT INFORMATION
  Report Type: 
  Country: None (occurrence: None)
  Receive Date: 20100717
  Receipt Date: 20071209
  Transmission Date: 20110219
  Serious: No
  Sender: FDA-Public Use
  Company Number: US-PFIZER INC-2007105690

PATIENT
  Sex: Female
  Weight: 47.727 kg

DRUGS (6)
  1. CHANTIX [Suspect]
     Indication: SMOKING CESSATION THERAPY
     Dates: start: 20071127
  2. FOSAMAX [Concomitant]
  3. MONTELUKAST SODIUM [Concomitant]
  4. VESICARE [Concomitant]
  5. POTASSIUM CHLORIDE [Concomitant]
     Indication: MUSCLE SPASMS
  6. IBUPROFEN [Concomitant]

REACTIONS (2)
  - NAUSEA [None]
  - VOMITING [None]
